FAERS Safety Report 9698929 (Version 2)
Quarter: 2013Q4

REPORT INFORMATION
  Report Type: Spontaneous
  Country: US (occurrence: US)
  Receive Date: 20131120
  Receipt Date: 20131120
  Transmission Date: 20140711
  Serious: Yes (Hospitalization)
  Sender: FDA-Public Use
  Company Number: US-B.I. PHARMACEUTICALS,INC./RIDGEFIELD-2013-BI-15601BP

PATIENT
  Age: 66 Year
  Sex: Female
  Weight: 74.84 kg

DRUGS (14)
  1. PRADAXA [Suspect]
     Indication: ANTICOAGULANT THERAPY
     Dosage: 300 MG
     Route: 048
     Dates: start: 20110810, end: 20120702
  2. PRADAXA [Suspect]
     Indication: ATRIAL FIBRILLATION
  3. ASA [Concomitant]
     Dosage: 81 MG
     Route: 048
  4. FOLIC ACID [Concomitant]
     Dosage: 1 MG
     Route: 048
  5. SYNTHROID [Concomitant]
     Dosage: 25 MG
     Route: 048
  6. SOTALOL [Concomitant]
     Dosage: 160 MG
     Route: 048
  7. PLAVIX [Concomitant]
     Dosage: 75 MG
  8. CYMBALTA [Concomitant]
     Dosage: 60 MG
     Route: 048
  9. ISOSORBIDE [Concomitant]
     Dosage: 60 MG
     Route: 048
  10. NEURONTIN [Concomitant]
     Dosage: 300 MG
     Route: 048
  11. ACCUPRIL [Concomitant]
     Dosage: 20 MG
     Route: 048
  12. CRESTOR [Concomitant]
     Dosage: 10 MG
     Route: 048
  13. ZETIA [Concomitant]
     Dosage: 10 MG
     Route: 048
  14. AMBIEN [Concomitant]
     Dosage: 10 MG
     Route: 048

REACTIONS (1)
  - Gastrointestinal haemorrhage [Unknown]
